FAERS Safety Report 9570885 (Version 1)
Quarter: 2013Q3

REPORT INFORMATION
  Report Type: Spontaneous
  Country: US (occurrence: None)
  Receive Date: 20130927
  Receipt Date: 20130927
  Transmission Date: 20140515
  Serious: Yes (Death)
  Sender: FDA-Public Use
  Company Number: None

PATIENT
  Age: 34 Year
  Sex: Female

DRUGS (1)
  1. TACROLIMUS [Suspect]
     Indication: LIVER TRANSPLANT
     Dosage: 3 CAPSULES TWICE A DAY ORAL
     Route: 048
     Dates: start: 20130326, end: 20130601

REACTIONS (1)
  - Death [None]
